FAERS Safety Report 9871431 (Version 3)
Quarter: 2014Q1

REPORT INFORMATION
  Report Type: Spontaneous
  Country: US (occurrence: US)
  Receive Date: 20140205
  Receipt Date: 20140326
  Transmission Date: 20141002
  Serious: Yes (Hospitalization, Other)
  Sender: FDA-Public Use
  Company Number: US-PFIZER INC-2014031965

PATIENT
  Age: 77 Year
  Sex: Female
  Weight: 113.38 kg

DRUGS (3)
  1. LIPITOR [Suspect]
     Dosage: UNK
  2. NEURONTIN [Suspect]
     Dosage: UNK
  3. ARTHROTEC [Suspect]
     Indication: ARTHRITIS
     Dosage: 100 MG, DAILY

REACTIONS (1)
  - Pneumonia [Unknown]
